FAERS Safety Report 8424211-3 (Version None)
Quarter: 2012Q2

REPORT INFORMATION
  Report Type: 
  Country: None (occurrence: None)
  Receive Date: 20120608
  Receipt Date: 20120207
  Transmission Date: 20120825
  Serious: No
  Sender: FDA-Public Use
  Company Number: US-ASTRAZENECA-2012SE08492

PATIENT
  Age: 92 Year
  Sex: Female

DRUGS (4)
  1. ATACAND [Suspect]
     Route: 048
  2. SYMBICORT [Concomitant]
  3. NEXIUM [Suspect]
     Route: 048
  4. PULMICORT FLEXHALER [Suspect]
     Route: 055

REACTIONS (6)
  - DRUG INEFFECTIVE [None]
  - EMPHYSEMA [None]
  - DRUG DOSE OMISSION [None]
  - BRONCHITIS [None]
  - DYSPEPSIA [None]
  - CHRONIC OBSTRUCTIVE PULMONARY DISEASE [None]
